FAERS Safety Report 7096978-0 (Version None)
Quarter: 2010Q4

REPORT INFORMATION
  Report Type: 
  Country: None (occurrence: None)
  Receive Date: 20101111
  Receipt Date: 20101105
  Transmission Date: 20110411
  Serious: Yes (Hospitalization, Other)
  Sender: FDA-Public Use
  Company Number: ZA-B.I. PHARMACEUTICALS,INC./RIDGEFIELD-2010-ZA-00185ZA

PATIENT
  Sex: Female

DRUGS (1)
  1. PRADAXA 75MG [Suspect]
     Indication: HIP ARTHROPLASTY
     Dosage: 150 MG
     Route: 048
     Dates: end: 20101028

REACTIONS (1)
  - DEEP VEIN THROMBOSIS [None]
